FAERS Safety Report 7082684-5 (Version None)
Quarter: 2010Q4

REPORT INFORMATION
  Report Type: 
  Country: None (occurrence: None)
  Receive Date: 20101104
  Receipt Date: 20101026
  Transmission Date: 20110411
  Serious: Yes (Hospitalization, Other)
  Sender: FDA-Public Use
  Company Number: US-ASTRAZENECA-2010SE50278

PATIENT
  Age: 20337 Day
  Sex: Female
  Weight: 80 kg

DRUGS (5)
  1. CRESTOR [Suspect]
     Indication: PRODUCT USED FOR UNKNOWN INDICATION
     Route: 048
     Dates: end: 20100707
  2. RIVAROXABAN [Suspect]
     Indication: ACUTE CORONARY SYNDROME
     Dosage: 2.5 MG OR 5 MG OR PLACEBO
     Route: 048
     Dates: start: 20100408, end: 20100408
  3. RIVAROXABAN [Suspect]
     Dosage: 2.5 MG OR 5 MG OR PLACEBO
     Route: 048
     Dates: start: 20100409, end: 20100707
  4. ASPIRIN [Concomitant]
     Indication: ACUTE CORONARY SYNDROME
     Route: 048
  5. THIENOPYRIDINE [Concomitant]
     Indication: ACUTE CORONARY SYNDROME
     Route: 048

REACTIONS (3)
  - ACUTE MYOCARDIAL INFARCTION [None]
  - ALANINE AMINOTRANSFERASE INCREASED [None]
  - PERCUTANEOUS CORONARY INTERVENTION [None]
